FAERS Safety Report 5278650-2 (Version None)
Quarter: 2007Q1

REPORT INFORMATION
  Report Type: 
  Country: None (occurrence: None)
  Receive Date: 20070328
  Receipt Date: 20070314
  Transmission Date: 20070707
  Serious: Yes (Hospitalization)
  Sender: FDA-Public Use
  Company Number: GB-JNJFOC-20070101041

PATIENT
  Age: 67 Year
  Sex: Female

DRUGS (4)
  1. CAELYX [Suspect]
     Route: 042
  2. CAELYX [Suspect]
     Indication: OVARIAN CANCER
     Route: 042
  3. DOMPERIDONE [Concomitant]
     Route: 048
  4. DEXAMETHASONE [Concomitant]
     Indication: PREMEDICATION
     Route: 048

REACTIONS (3)
  - BRONCHITIS [None]
  - DYSPNOEA [None]
  - SKIN REACTION [None]
